FAERS Safety Report 4555840-5 (Version None)
Quarter: 2005Q1

REPORT INFORMATION
  Report Type: 
  Country: None (occurrence: None)
  Receive Date: 20050111
  Receipt Date: 20041020
  Transmission Date: 20050727
  Serious: No
  Sender: FDA-Public Use
  Company Number: 2004S1000236

PATIENT
  Age: 61 Year
  Sex: Female
  Weight: 68 kg

DRUGS (17)
  1. CUBICIN [Suspect]
     Indication: STAPHYLOCOCCAL BACTERAEMIA
     Dosage: 300 MG;TIW;IV
     Route: 042
     Dates: start: 20041014, end: 20041016
  2. PHENYTOIN [Concomitant]
  3. PHENOBARBITAL [Concomitant]
  4. REGULAR INSULIN [Concomitant]
  5. METOPROLOL [Concomitant]
  6. LISINOPRIL [Concomitant]
  7. AMLODIPINE [Concomitant]
  8. CLONIDINE [Concomitant]
  9. CALCITRIOL [Concomitant]
  10. LEVOTHYROXINE [Concomitant]
  11. WARFARIN [Concomitant]
  12. PANTOPRAZOLE [Concomitant]
  13. TRAZODONE HCL [Concomitant]
  14. RISPERIDONE [Concomitant]
  15. IBUPROFEN [Concomitant]
  16. VANCOMYCIN [Concomitant]
  17. GENTAMICIN [Concomitant]

REACTIONS (1)
  - DYSKINESIA [None]
